FAERS Safety Report 19157171 (Version 2)
Quarter: 2021Q2

REPORT INFORMATION
  Report Type: Spontaneous
  Country: CA (occurrence: CA)
  Receive Date: 20210420
  Receipt Date: 20210603
  Transmission Date: 20210717
  Serious: Yes (Hospitalization, Other)
  Sender: FDA-Public Use
  Company Number: NVSC2021CA080496

PATIENT
  Sex: Female

DRUGS (2)
  1. LETROZOLE. [Suspect]
     Active Substance: LETROZOLE
     Indication: PRODUCT USED FOR UNKNOWN INDICATION
     Dosage: UNK
     Route: 065
     Dates: start: 20190117, end: 20191206
  2. LETROZOLE. [Suspect]
     Active Substance: LETROZOLE
     Dosage: UNK
     Route: 065
     Dates: start: 202101

REACTIONS (9)
  - Respiratory symptom [Unknown]
  - Ascites [Unknown]
  - Pulmonary embolism [Unknown]
  - Drug ineffective [Unknown]
  - Disease progression [Unknown]
  - Pelvic discomfort [Unknown]
  - Hilar lymphadenopathy [Unknown]
  - Gastrointestinal disorder [Unknown]
  - Pleural effusion [Unknown]
